FAERS Safety Report 5801097-4 (Version None)
Quarter: 2008Q3

REPORT INFORMATION
  Report Type: 
  Country: None (occurrence: None)
  Receive Date: 20080707
  Receipt Date: 20080623
  Transmission Date: 20090109
  Serious: Yes (Other)
  Sender: FDA-Public Use
  Company Number: US-BRISTOL-MYERS SQUIBB COMPANY-14249130

PATIENT

DRUGS (3)
  1. REYATAZ [Suspect]
  2. ERYTHROMYCIN [Interacting]
     Indication: IMPAIRED GASTRIC EMPTYING
  3. RITONAVIR [Interacting]

REACTIONS (4)
  - CD4 LYMPHOCYTES DECREASED [None]
  - DRUG INTERACTION [None]
  - IMPAIRED GASTRIC EMPTYING [None]
  - VIRAL LOAD INCREASED [None]
